FAERS Safety Report 5379935-1 (Version None)
Quarter: 2007Q3

REPORT INFORMATION
  Report Type: 
  Country: None (occurrence: None)
  Receive Date: 20070706
  Receipt Date: 20070628
  Transmission Date: 20080115
  Serious: Yes (Other)
  Sender: FDA-Public Use
  Company Number: JP-NOVOPROD-264151

PATIENT
  Sex: Male
  Weight: 79 kg

DRUGS (6)
  1. NOVOSEVEN [Suspect]
     Indication: MUSCLE HAEMORRHAGE
     Dosage: 9.6 MG, UNK
     Route: 042
     Dates: start: 20001101
  2. NOVOSEVEN [Suspect]
     Dosage: 9.6 MG, 19:30 + 21:30
     Route: 042
     Dates: start: 20020429, end: 20020429
  3. NOVOSEVEN [Suspect]
     Dosage: 9.6 MG  9:55 + 10:30
     Route: 042
     Dates: start: 20020521, end: 20020521
  4. NOVOSEVEN [Suspect]
     Dosage: 9.6 MG  9.35
     Route: 042
     Dates: start: 20020816, end: 20020816
  5. NOVOSEVEN [Suspect]
     Dosage: 9.6 11:30
     Dates: start: 20020819, end: 20020819
  6. URSO                               /00465701/ [Concomitant]
     Indication: HAEMORRHAGE
     Dosage: 600 MG, QD
     Route: 048
     Dates: start: 20011113, end: 20020117

REACTIONS (1)
  - SYSTEMIC LUPUS ERYTHEMATOSUS [None]
